FAERS Safety Report 16136229 (Version 1)
Quarter: 2019Q1

REPORT INFORMATION
  Report Type: Spontaneous
  Country: NO (occurrence: NO)
  Receive Date: 20190329
  Receipt Date: 20190329
  Transmission Date: 20190418
  Serious: Yes (Other)
  Sender: FDA-Public Use
  Company Number: NO-PFIZER INC-2019132484

PATIENT
  Age: 37 Year
  Sex: Male
  Weight: 95 kg

DRUGS (2)
  1. LYRICA [Suspect]
     Active Substance: PREGABALIN
     Indication: NEURALGIA
     Dosage: THE PATIENT REPORTED THAT SOMETIMES DOSAGE MIGHT EXCEED TO 300 MG 4 TIMES A DAY
     Dates: start: 20171101
  2. METADON NAF [Concomitant]
     Dosage: 60 MG
     Route: 048

REACTIONS (5)
  - Potentiating drug interaction [Recovering/Resolving]
  - Pain in extremity [Not Recovered/Not Resolved]
  - Withdrawal syndrome [Not Recovered/Not Resolved]
  - Overdose [Unknown]
  - Drug interaction [Recovered/Resolved with Sequelae]

NARRATIVE: CASE EVENT DATE: 20180101
